FAERS Safety Report 6552239-7 (Version None)
Quarter: 2010Q1

REPORT INFORMATION
  Report Type: 
  Country: None (occurrence: None)
  Receive Date: 20100126
  Receipt Date: 20100119
  Transmission Date: 20100710
  Serious: Yes (Hospitalization)
  Sender: FDA-Public Use
  Company Number: IT-ABBOTT-09P-083-0611007-00

PATIENT
  Sex: Male

DRUGS (2)
  1. KLACID TABLETS [Suspect]
     Indication: TOOTH ABSCESS
     Route: 048
     Dates: start: 20091119, end: 20091123
  2. SEREUPIN [Interacting]
     Indication: DEPRESSION
     Route: 048
     Dates: start: 20000101

REACTIONS (6)
  - DRUG INTERACTION [None]
  - DYSKINESIA [None]
  - DYSPHEMIA [None]
  - DYSPNOEA [None]
  - MUSCLE RIGIDITY [None]
  - TREMOR [None]
